FAERS Safety Report 7407591-7 (Version None)
Quarter: 2011Q2

REPORT INFORMATION
  Report Type: 
  Country: None (occurrence: None)
  Receive Date: 20110406
  Receipt Date: 20110406
  Transmission Date: 20111010
  Serious: No
  Sender: FDA-Public Use
  Company Number: None

PATIENT
  Age: 56 Year
  Sex: Male
  Weight: 71.2 kg

DRUGS (4)
  1. LISINOPRIL AND HYDROCHLOROTHIAZIDE [Suspect]
     Indication: HYPOTENSION
     Dosage: 1 TAB EVERY DAY PO ; 1 TAB TID PO
     Route: 048
     Dates: start: 20070309, end: 20110223
  2. LISINOPRIL AND HYDROCHLOROTHIAZIDE [Suspect]
     Indication: PROSTATE CANCER
     Dosage: 1 TAB EVERY DAY PO ; 1 TAB TID PO
     Route: 048
     Dates: start: 20070309, end: 20110223
  3. LISINOPRIL AND HYDROCHLOROTHIAZIDE [Suspect]
     Indication: HYPOTENSION
     Dosage: 1 TAB EVERY DAY PO ; 1 TAB TID PO
     Route: 048
     Dates: start: 20100714, end: 20110312
  4. LISINOPRIL AND HYDROCHLOROTHIAZIDE [Suspect]
     Indication: PROSTATE CANCER
     Dosage: 1 TAB EVERY DAY PO ; 1 TAB TID PO
     Route: 048
     Dates: start: 20100714, end: 20110312

REACTIONS (3)
  - ANGIOEDEMA [None]
  - PRURITUS [None]
  - URTICARIA [None]
